FAERS Safety Report 7245895-1 (Version None)
Quarter: 2011Q1

REPORT INFORMATION
  Report Type: 
  Country: None (occurrence: None)
  Receive Date: 20110126
  Receipt Date: 20110118
  Transmission Date: 20110831
  Serious: Yes (Death)
  Sender: FDA-Public Use
  Company Number: NZ-PFIZER INC-NZ-WYE-G06443910

PATIENT
  Sex: Male

DRUGS (4)
  1. PREGABALIN [Suspect]
     Indication: NEURALGIA
     Dosage: 75 MG, 2X/DAY
     Route: 065
  2. EFFEXOR XR [Suspect]
     Dosage: 75.0 MG, 1X/DAY
     Route: 065
  3. BACLOFEN [Concomitant]
     Indication: MUSCLE SPASTICITY
     Dosage: ^HALF DOSAGE^
     Route: 037
  4. PREGABALIN [Suspect]
     Dosage: 150 MG, 2X/DAY

REACTIONS (2)
  - COMPLETED SUICIDE [None]
  - GUN SHOT WOUND [None]
